FAERS Safety Report 8590170 (Version 2)
Quarter: 2012Q4

REPORT INFORMATION
  Report Type: 
  Country: US (occurrence: US)
  Receive Date: 20120601
  Receipt Date: 20121005
  Transmission Date: 20130627
  Serious: Yes (Hospitalization)
  Sender: FDA-Public Use
  Company Number: US-BAYER-2012-053451

PATIENT
  Age: 41 Year
  Sex: Female

DRUGS (10)
  1. YASMIN [Suspect]
     Dosage: UNK
     Dates: start: 20061115, end: 200905
  2. OCELLA [Suspect]
     Dosage: UNK
     Dates: start: 20061115, end: 200905
  3. DICYCLOMINE [Concomitant]
     Indication: GASTROINTESTINAL PAIN
     Dosage: 10 mg, UNK
  4. CITALOPRAM [Concomitant]
     Dosage: 20 mg, UNK
  5. AVELOX [Concomitant]
     Dosage: 400 mg, UNK
  6. NEXIUM [Concomitant]
     Dosage: 40 mg, UNK
  7. OMEPRAZOLE [Concomitant]
     Dosage: 20 mg, UNK
  8. ADVIL [Concomitant]
     Dosage: 200 mg, UNK
  9. BENTYL [Concomitant]
     Indication: GASTROINTESTINAL PAIN
     Dosage: 10 mg, UNK
  10. CELEXA [Concomitant]
     Dosage: 10 mg, UNK

REACTIONS (9)
  - Gallbladder injury [None]
  - Biliary dyskinesia [None]
  - Pain [None]
  - Injury [None]
  - General physical health deterioration [None]
  - Anxiety [None]
  - Emotional distress [None]
  - Scar [None]
  - Pain [None]
